FAERS Safety Report 17808433 (Version 2)
Quarter: 2020Q2

REPORT INFORMATION
  Report Type: Report from Study
  Country: IE (occurrence: IE)
  Receive Date: 20200520
  Receipt Date: 20200605
  Transmission Date: 20200714
  Serious: No
  Sender: FDA-Public Use
  Company Number: IE-JNJFOC-20200511858

PATIENT
  Age: 28 Year
  Sex: Male

DRUGS (12)
  1. PANTOPRAZOLE [Concomitant]
     Active Substance: PANTOPRAZOLE
     Route: 050
  2. TRAMADOL. [Concomitant]
     Active Substance: TRAMADOL
     Route: 050
  3. STELARA [Suspect]
     Active Substance: USTEKINUMAB
     Indication: CROHN^S DISEASE
     Route: 058
     Dates: start: 20190606
  4. CHOLESTAGEL [Concomitant]
     Active Substance: COLESEVELAM HYDROCHLORIDE
     Route: 050
  5. DELTACORTRIL [Concomitant]
     Active Substance: PREDNISOLONE
     Dosage: REDUCING BY 5MG
     Route: 050
  6. CALCICHEW-D3 [Concomitant]
     Active Substance: CALCIUM\CHOLECALCIFEROL
     Route: 050
  7. AMITRIPTYLINE [Concomitant]
     Active Substance: AMITRIPTYLINE
     Route: 050
  8. ONDANSETRON [Concomitant]
     Active Substance: ONDANSETRON
     Route: 050
  9. IMODIUM [Concomitant]
     Active Substance: LOPERAMIDE HYDROCHLORIDE
     Route: 050
  10. BUDESONIDE EASYHALER [Concomitant]
     Active Substance: BUDESONIDE
     Route: 050
  11. HUMERA [Concomitant]
     Active Substance: ADALIMUMAB
     Route: 050
  12. ZOLEPANT [Concomitant]
     Route: 050

REACTIONS (2)
  - Back pain [Recovered/Resolved]
  - Sinusitis [Recovered/Resolved]

NARRATIVE: CASE EVENT DATE: 20191122
